FAERS Safety Report 23897098 (Version 2)
Quarter: 2024Q4

REPORT INFORMATION
  Report Type: Report from Study
  Country: IT (occurrence: IT)
  Receive Date: 20240524
  Receipt Date: 20241007
  Transmission Date: 20250114
  Serious: No
  Sender: SANDOZ
  Company Number: IT-SANDOZ-SDZ2024IT051794

PATIENT
  Age: 11 Year
  Sex: Female
  Weight: 34 kg

DRUGS (1)
  1. SOMATROPIN [Suspect]
     Active Substance: SOMATROPIN
     Indication: Growth hormone deficiency
     Dosage: 0.7 MG
     Route: 058
     Dates: start: 20210525

REACTIONS (3)
  - Drug dose omission by device [Unknown]
  - Device occlusion [Unknown]
  - Device issue [Unknown]

NARRATIVE: CASE EVENT DATE: 20240520
